FAERS Safety Report 7891508-5 (Version None)
Quarter: 2011Q4

REPORT INFORMATION
  Report Type: 
  Country: None (occurrence: None)
  Receive Date: 20111103
  Receipt Date: 20110804
  Transmission Date: 20120403
  Serious: No
  Sender: FDA-Public Use
  Company Number: US-AMGEN-USASP2011039598

PATIENT

DRUGS (7)
  1. CELEBREX [Concomitant]
  2. FOLIC ACID [Concomitant]
  3. MTX                                /00113801/ [Concomitant]
  4. TYLENOL (CAPLET) [Concomitant]
  5. ENBREL [Suspect]
     Indication: PRODUCT USED FOR UNKNOWN INDICATION
     Dosage: 50 MG, QWK
  6. VITAMIN C                          /00008001/ [Concomitant]
  7. ASPIRIN [Concomitant]

REACTIONS (3)
  - BURNING SENSATION [None]
  - HYPOAESTHESIA [None]
  - PARAESTHESIA [None]
